FAERS Safety Report 16661615 (Version 1)
Quarter: 2019Q3

REPORT INFORMATION
  Report Type: Spontaneous
  Country: US (occurrence: US)
  Receive Date: 20190802
  Receipt Date: 20190802
  Transmission Date: 20191004
  Serious: Yes (Other)
  Sender: FDA-Public Use
  Company Number: US-MYLANLABS-2019M1071580

PATIENT
  Age: 51 Year
  Sex: Male

DRUGS (2)
  1. DECITABINE. [Suspect]
     Active Substance: DECITABINE
     Indication: ACUTE MYELOID LEUKAEMIA
     Dosage: THROUGH IV PIGGYBACK ON DAYS 1 TO 3
     Route: 041
  2. MIDOSTAURIN [Suspect]
     Active Substance: MIDOSTAURIN
     Indication: ACUTE MYELOID LEUKAEMIA
     Dosage: ON DAYS 8 TO 21
     Route: 048

REACTIONS (10)
  - Clostridium difficile infection [Unknown]
  - Epistaxis [Unknown]
  - Fatigue [Unknown]
  - Pneumonia respiratory syncytial viral [Unknown]
  - Respiratory failure [Unknown]
  - Oedema peripheral [Unknown]
  - Gastrointestinal haemorrhage [Unknown]
  - Duodenal ulcer [Unknown]
  - Febrile neutropenia [Unknown]
  - Muscular weakness [Unknown]
